FAERS Safety Report 6616263-8 (Version None)
Quarter: 2010Q1

REPORT INFORMATION
  Report Type: 
  Country: None (occurrence: None)
  Receive Date: 20100305
  Receipt Date: 20100224
  Transmission Date: 20100710
  Serious: Yes (Hospitalization)
  Sender: FDA-Public Use
  Company Number: US-ELI_LILLY_AND_COMPANY-US201002006980

PATIENT
  Sex: Male
  Weight: 67.12 kg

DRUGS (5)
  1. PEMETREXED [Suspect]
     Indication: LUNG NEOPLASM MALIGNANT
     Dosage: 500 MG/M2, OTHER
     Route: 042
     Dates: start: 20090925
  2. CISPLATIN [Suspect]
     Indication: LUNG NEOPLASM MALIGNANT
     Dosage: 75 MG/M2, OTHER
     Route: 042
     Dates: start: 20090925
  3. AG-013736(AXITINIB) [Suspect]
     Indication: LUNG NEOPLASM MALIGNANT
     Dosage: 5 MG, 2/D
     Route: 048
     Dates: start: 20090925
  4. FOLIC ACID [Concomitant]
     Dates: start: 20090901
  5. KEPPRA [Concomitant]
     Dosage: UNK, 2/D
     Route: 048
     Dates: start: 20090806

REACTIONS (2)
  - DEHYDRATION [None]
  - PRESYNCOPE [None]
